FAERS Safety Report 12698724 (Version 3)
Quarter: 2016Q3

REPORT INFORMATION
  Report Type: Spontaneous
  Country: SG (occurrence: SG)
  Receive Date: 20160830
  Receipt Date: 20160922
  Transmission Date: 20161109
  Serious: Yes (Hospitalization, Other)
  Sender: FDA-Public Use
  Company Number: SG-009507513-1608SGP013266

PATIENT
  Age: 25 Year
  Sex: Female

DRUGS (3)
  1. INFLUVAC [Concomitant]
     Active Substance: INFLUENZA VIRUS VACCINE
     Indication: PROPHYLAXIS
     Dosage: UNK
     Dates: start: 20160504
  2. KEYTRUDA [Suspect]
     Active Substance: PEMBROLIZUMAB
     Indication: HODGKIN^S DISEASE NODULAR SCLEROSIS
     Dosage: 100 MG, Q3W
     Route: 042
     Dates: start: 20160316, end: 20160509
  3. PREVNAR 13 [Concomitant]
     Active Substance: PNEUMOCOCCAL 13-VALENT CONJUGATE VACCINE
     Indication: PROPHYLAXIS
     Dates: start: 20160418

REACTIONS (6)
  - Guillain-Barre syndrome [Recovering/Resolving]
  - Headache [Unknown]
  - Dengue fever [Recovered/Resolved]
  - Drug ineffective [Unknown]
  - Product use issue [Unknown]
  - Platelet transfusion [Unknown]

NARRATIVE: CASE EVENT DATE: 2016
